FAERS Safety Report 6023279-1 (Version None)
Quarter: 2008Q4

REPORT INFORMATION
  Report Type: 
  Country: None (occurrence: None)
  Receive Date: 20081224
  Receipt Date: 20081224
  Transmission Date: 20090506
  Serious: Yes (Other)
  Sender: FDA-Public Use
  Company Number: None

PATIENT
  Age: 62 Year
  Sex: Male
  Weight: 101.6057 kg

DRUGS (2)
  1. FINASTERIDE [Suspect]
     Indication: BENIGN PROSTATIC HYPERPLASIA
     Dates: start: 20080820, end: 20080904
  2. FINASTERIDE [Suspect]
     Indication: URINARY TRACT DISORDER
     Dates: start: 20080820, end: 20080904

REACTIONS (5)
  - CONDITION AGGRAVATED [None]
  - POLLAKIURIA [None]
  - PRODUCT QUALITY ISSUE [None]
  - URINARY TRACT DISORDER [None]
  - URINE FLOW DECREASED [None]
